FAERS Safety Report 9921494 (Version 2)
Quarter: 2014Q1

REPORT INFORMATION
  Report Type: Spontaneous
  Country: GB (occurrence: GB)
  Receive Date: 20140225
  Receipt Date: 20140225
  Transmission Date: 20141002
  Serious: Yes (Other)
  Sender: FDA-Public Use
  Company Number: PHFR2013GB006530

PATIENT
  Sex: Male

DRUGS (3)
  1. CLOZARIL [Suspect]
     Indication: SCHIZOPHRENIA
     Dosage: 150/175 MG
     Route: 048
     Dates: start: 20131016
  2. CLOZARIL [Suspect]
     Dosage: 150/225 MG
     Route: 048
  3. CLOZARIL [Suspect]
     Dosage: 225 MG, BID

REACTIONS (6)
  - Pericarditis [Unknown]
  - Pericardial effusion [Unknown]
  - Myocarditis [Unknown]
  - Tachycardia [Unknown]
  - Blood pressure increased [Unknown]
  - Lymphocyte count decreased [Unknown]
